FAERS Safety Report 11858658 (Version 1)
Quarter: 2015Q4

REPORT INFORMATION
  Report Type: Other
  Country: CN (occurrence: CN)
  Receive Date: 20151222
  Receipt Date: 20151222
  Transmission Date: 20160305
  Serious: Yes (Other)
  Sender: FDA-Public Use
  Company Number: CN-ORCHID HEALTHCARE-1045758

PATIENT
  Age: 68 Year
  Sex: Female

DRUGS (1)
  1. CEFUROXIME AXETIL. [Suspect]
     Active Substance: CEFUROXIME AXETIL
     Indication: SURGERY
     Route: 050

REACTIONS (3)
  - Macular oedema [Recovered/Resolved]
  - Blindness [Recovered/Resolved]
  - Retinal detachment [Recovered/Resolved]
